FAERS Safety Report 4687388-1 (Version None)
Quarter: 2005Q2

REPORT INFORMATION
  Report Type: 
  Country: None (occurrence: None)
  Receive Date: 20050608
  Receipt Date: 20050525
  Transmission Date: 20051028
  Serious: Yes (Other)
  Sender: FDA-Public Use
  Company Number: 2005-01143

PATIENT
  Age: 22 Year
  Sex: Female
  Weight: 81.6 kg

DRUGS (1)
  1. VELCADE [Suspect]
     Indication: LYMPHOMA
     Dates: start: 20050517, end: 20050522

REACTIONS (2)
  - BRONCHOSPASM [None]
  - URTICARIA [None]
